FAERS Safety Report 7458021-0 (Version None)
Quarter: 2011Q2

REPORT INFORMATION
  Report Type: 
  Country: None (occurrence: None)
  Receive Date: 20110504
  Receipt Date: 20110428
  Transmission Date: 20111010
  Serious: Yes (Hospitalization)
  Sender: FDA-Public Use
  Company Number: US-B.I. PHARMACEUTICALS,INC./RIDGEFIELD-2011-BP-12177BP

PATIENT
  Sex: Female

DRUGS (6)
  1. PRADAXA [Suspect]
     Indication: ATRIAL FIBRILLATION
     Dosage: 300 MG
     Route: 048
     Dates: start: 20110406, end: 20110411
  2. INDAPAMIDE [Concomitant]
     Indication: DIURETIC THERAPY
  3. OXYBUTYNIN [Concomitant]
  4. POTASSIUM [Concomitant]
  5. CARTIA XT [Concomitant]
  6. CALCIUM [Concomitant]

REACTIONS (3)
  - BURNING SENSATION [None]
  - DIARRHOEA [None]
  - CHEST PAIN [None]
